FAERS Safety Report 19870354 (Version 4)
Quarter: 2021Q4

REPORT INFORMATION
  Report Type: Report from Study
  Country: US (occurrence: US)
  Receive Date: 20210922
  Receipt Date: 20211225
  Transmission Date: 20220303
  Serious: Yes (Hospitalization, Disabling, Other)
  Sender: FDA-Public Use
  Company Number: US-SANOFI-00459010

PATIENT
  Age: 66 Year
  Sex: Female

DRUGS (2)
  1. TERIFLUNOMIDE [Suspect]
     Active Substance: TERIFLUNOMIDE
     Indication: Multiple sclerosis
     Dosage: 14 MG, QD
     Route: 048
     Dates: start: 20151120
  2. SOLU-MEDROL [Concomitant]
     Active Substance: METHYLPREDNISOLONE SODIUM SUCCINATE

REACTIONS (17)
  - Femur fracture [Not Recovered/Not Resolved]
  - Immobile [Not Recovered/Not Resolved]
  - Illness [Unknown]
  - Stress [Unknown]
  - Fall [Not Recovered/Not Resolved]
  - Dysstasia [Unknown]
  - Malaise [Unknown]
  - Headache [Unknown]
  - Gait disturbance [Not Recovered/Not Resolved]
  - Urinary tract infection [Not Recovered/Not Resolved]
  - Cataract [Unknown]
  - Strabismus [Unknown]
  - Fracture [Unknown]
  - Wheelchair user [Unknown]
  - Dysgraphia [Unknown]
  - Muscle contracture [Unknown]
  - Visual impairment [Unknown]

NARRATIVE: CASE EVENT DATE: 20180801
